FAERS Safety Report 19245893 (Version 1)
Quarter: 2021Q2

REPORT INFORMATION
  Report Type: Spontaneous
  Country: CA (occurrence: CA)
  Receive Date: 20210512
  Receipt Date: 20210512
  Transmission Date: 20210717
  Serious: Yes (Life-Threatening, Other)
  Sender: FDA-Public Use
  Company Number: CA-ADIENNEP-2021AD000299

PATIENT
  Age: 9 Month
  Sex: Male

DRUGS (13)
  1. ONDANSETRON [Concomitant]
     Active Substance: ONDANSETRON
  2. CARBOPLATIN. [Suspect]
     Active Substance: CARBOPLATIN
     Indication: TRANSPLANT
     Route: 042
  3. CHOLECALCIFEROL [Concomitant]
     Active Substance: CHOLECALCIFEROL
  4. GRANULOCYTE COLONY STIMULATING FACTOR (G?CSF) [Concomitant]
     Active Substance: GRANULOCYTE COLONY-STIMULATING FACTOR NOS
  5. URSODEOXYCHOLIC ACID [Concomitant]
     Active Substance: URSODIOL
  6. FLUCONAZOLE. [Concomitant]
     Active Substance: FLUCONAZOLE
  7. VANCOMYCIN [Concomitant]
     Active Substance: VANCOMYCIN
  8. ACYCLOVIR. [Concomitant]
     Active Substance: ACYCLOVIR
  9. PENTAMIDINE ISETHIONATE INJ 300MG/VIAL BP [Concomitant]
  10. CEFTAZIDIME. [Concomitant]
     Active Substance: CEFTAZIDIME
     Dosage: ()
  11. HYDROCORTISONE. [Concomitant]
     Active Substance: HYDROCORTISONE
  12. THIOTEPA. [Suspect]
     Active Substance: THIOTEPA
     Indication: TRANSPLANT
     Route: 042
  13. FAMOTIDINE. [Concomitant]
     Active Substance: FAMOTIDINE

REACTIONS (7)
  - Aplastic anaemia [Recovered/Resolved]
  - White blood cell count decreased [Recovered/Resolved]
  - Platelet count decreased [Recovered/Resolved]
  - Diarrhoea [Recovered/Resolved]
  - Neutrophil count decreased [Recovered/Resolved]
  - Haemoglobin decreased [Recovered/Resolved]
  - Mucosal inflammation [Recovered/Resolved]
